FAERS Safety Report 24413628 (Version 5)
Quarter: 2024Q4

REPORT INFORMATION
  Report Type: Spontaneous
  Country: JP (occurrence: JP)
  Receive Date: 20241008
  Receipt Date: 20241118
  Transmission Date: 20250115
  Serious: Yes (Other)
  Sender: OTSUKA
  Company Number: JP-OTSUKA-2024_020440

PATIENT
  Sex: Male

DRUGS (6)
  1. REXULTI [Suspect]
     Active Substance: BREXPIPRAZOLE
     Indication: Schizophrenia
     Dosage: UNK
     Route: 048
  2. ABILIFY MAINTENA [Suspect]
     Active Substance: ARIPIPRAZOLE
     Indication: Schizophrenia
     Dosage: UNK
     Route: 065
  3. ABILIFY [Suspect]
     Active Substance: ARIPIPRAZOLE
     Indication: Product used for unknown indication
     Dosage: 30MG
     Route: 048
  4. ABILIFY [Suspect]
     Active Substance: ARIPIPRAZOLE
     Dosage: 6 MG
     Route: 048
  5. LATUDA [Suspect]
     Active Substance: LURASIDONE HYDROCHLORIDE
     Indication: Schizophrenia
     Dosage: UNK
     Route: 048
  6. OLANZAPINE [Concomitant]
     Active Substance: OLANZAPINE
     Indication: Product used for unknown indication
     Dosage: UNK
     Route: 065

REACTIONS (14)
  - Erectile dysfunction [Unknown]
  - Phobia [Unknown]
  - Phobia [Unknown]
  - Emotional distress [Unknown]
  - Fear [Not Recovered/Not Resolved]
  - Depression [Unknown]
  - Feeling abnormal [Not Recovered/Not Resolved]
  - Pyrexia [Recovered/Resolved]
  - Psychotic disorder [Unknown]
  - Tension [Not Recovered/Not Resolved]
  - Abdominal pain upper [Unknown]
  - Nasopharyngitis [Unknown]
  - Restlessness [Not Recovered/Not Resolved]
  - Anxiety [Unknown]

NARRATIVE: CASE EVENT DATE: 20240101
